APPROVED DRUG PRODUCT: VINORELBINE TARTRATE
Active Ingredient: VINORELBINE TARTRATE
Strength: EQ 10MG BASE/ML
Dosage Form/Route: INJECTABLE;INJECTION
Application: A208997 | Product #001
Applicant: NOVAST LABORATORIES LTD
Approved: Aug 5, 2019 | RLD: No | RS: No | Type: DISCN